FAERS Safety Report 7653912-X (Version None)
Quarter: 2011Q3

REPORT INFORMATION
  Report Type: 
  Country: None (occurrence: None)
  Receive Date: 20110803
  Receipt Date: 20110725
  Transmission Date: 20111222
  Serious: Yes (Other)
  Sender: FDA-Public Use
  Company Number: US-ELI_LILLY_AND_COMPANY-US201107006660

PATIENT
  Sex: Female

DRUGS (4)
  1. METFORMIN HCL [Concomitant]
     Indication: DIABETES MELLITUS
     Dosage: 250 MG, BID
     Route: 048
  2. BYETTA [Suspect]
     Indication: TYPE 2 DIABETES MELLITUS
     Dosage: 5 UG, BID
     Route: 058
  3. GLIMEPIRIDE [Concomitant]
     Indication: DIABETES MELLITUS
     Dosage: 4 MG, BID
     Route: 048
  4. BYETTA [Suspect]
     Dosage: 10 UG, BID
     Route: 058

REACTIONS (8)
  - OXYGEN SATURATION DECREASED [None]
  - BLOOD GLUCOSE INCREASED [None]
  - NAUSEA [None]
  - FATIGUE [None]
  - DYSPNOEA [None]
  - DECREASED APPETITE [None]
  - MALAISE [None]
  - NASOPHARYNGITIS [None]
